FAERS Safety Report 4552091-5 (Version None)
Quarter: 2005Q1

REPORT INFORMATION
  Report Type: 
  Country: None (occurrence: None)
  Receive Date: 20050112
  Receipt Date: 20050104
  Transmission Date: 20050727
  Serious: Yes (Hospitalization, Other)
  Sender: FDA-Public Use
  Company Number: 2005004121

PATIENT
  Age: 49 Year
  Sex: Male
  Weight: 113.3993 kg

DRUGS (9)
  1. NEURONTIN [Suspect]
     Indication: ILL-DEFINED DISORDER
     Dates: start: 20040101, end: 20040101
  2. LIPITOR [Suspect]
     Indication: BLOOD CHOLESTEROL
     Dosage: 10 MG
  3. BEXTRA [Suspect]
     Indication: PAIN
     Dates: start: 20040601, end: 20040101
  4. LEVOTHYROXINE SODIUM [Suspect]
     Indication: THYROID FUNCTION TEST ABNORMAL
     Dosage: 0.5 MG
  5. PERINDOPRIL ERBUMINE (PERINDOPRIL ERBUMINE) [Suspect]
     Indication: HYPERTENSION
  6. HYDROCHLOROTHIAZIDE [Suspect]
     Indication: HYPERTENSION
  7. TOPIRAMATE [Concomitant]
  8. NAPROXEN SODIUM [Concomitant]
  9. ASPIRIN [Concomitant]

REACTIONS (23)
  - BLOOD CREATINE PHOSPHOKINASE INCREASED [None]
  - BLOOD TESTOSTERONE DECREASED [None]
  - CHEST PAIN [None]
  - DEMYELINATION [None]
  - DEPRESSION [None]
  - DRUG INEFFECTIVE [None]
  - DRUG TOXICITY [None]
  - FATIGUE [None]
  - FEELING ABNORMAL [None]
  - HYPERTENSION [None]
  - HYPOAESTHESIA [None]
  - LETHARGY [None]
  - MENTAL DISORDER [None]
  - MUSCLE DISORDER [None]
  - MUSCLE TIGHTNESS [None]
  - MUSCLE TWITCHING [None]
  - MUSCULAR WEAKNESS [None]
  - MYALGIA [None]
  - NERVOUSNESS [None]
  - PAIN IN EXTREMITY [None]
  - SLEEP APNOEA SYNDROME [None]
  - THYROID FUNCTION TEST ABNORMAL [None]
  - VIRAL INFECTION [None]
